FAERS Safety Report 5778255-0 (Version None)
Quarter: 2008Q2

REPORT INFORMATION
  Report Type: 
  Country: None (occurrence: None)
  Receive Date: 20080619
  Receipt Date: 20080610
  Transmission Date: 20081010
  Serious: Yes (Hospitalization)
  Sender: FDA-Public Use
  Company Number: US-BAYER-200810314BCC

PATIENT
  Age: 56 Year
  Sex: Female
  Weight: 82 kg

DRUGS (11)
  1. ALEVE (CAPLET) [Suspect]
     Indication: ARTHRALGIA
     Dosage: TOTAL DAILY DOSE: 880 MG  UNIT DOSE: 220 MG
     Route: 048
     Dates: start: 20070724, end: 20070817
  2. PAXIL CR [Concomitant]
  3. NEXIUM [Concomitant]
  4. COZAAR [Concomitant]
  5. ADVAIR DISKUS 100/50 [Concomitant]
  6. ZANTAC [Concomitant]
     Dosage: TOTAL DAILY DOSE: 300 MG
  7. PROTONIX [Concomitant]
     Dosage: TOTAL DAILY DOSE: 40 MG  UNIT DOSE: 40 MG
  8. TOPROL-XL [Concomitant]
     Dosage: TOTAL DAILY DOSE: 150 MG
  9. LOSARTAN POTASSIUM [Concomitant]
     Dosage: TOTAL DAILY DOSE: 50 MG
  10. FLOVENT [Concomitant]
     Dosage: TOTAL DAILY DOSE: 2 PUFF
     Route: 055
  11. ALBUTEROL [Concomitant]
     Route: 055

REACTIONS (11)
  - ANAPHYLACTIC SHOCK [None]
  - ASTHENIA [None]
  - CLOSTRIDIAL INFECTION [None]
  - DRUG ERUPTION [None]
  - DYSPNOEA [None]
  - HYPERTENSION [None]
  - LOSS OF CONSCIOUSNESS [None]
  - PNEUMONIA [None]
  - PULSE ABSENT [None]
  - PYREXIA [None]
  - URINARY TRACT INFECTION [None]
